FAERS Safety Report 8131436-3 (Version None)
Quarter: 2012Q1

REPORT INFORMATION
  Report Type: 
  Country: None (occurrence: None)
  Receive Date: 20120213
  Receipt Date: 20120203
  Transmission Date: 20120608
  Serious: Yes (Hospitalization)
  Sender: FDA-Public Use
  Company Number: US-BAYER-2011-091719

PATIENT
  Sex: Female
  Weight: 90.703 kg

DRUGS (1)
  1. YAZ [Suspect]
     Indication: CONTRACEPTION
     Dosage: UNK
     Route: 048
     Dates: start: 20100101, end: 20110101

REACTIONS (9)
  - ANXIETY [None]
  - INJURY [None]
  - CEREBRAL ARTERY EMBOLISM [None]
  - VISUAL IMPAIRMENT [None]
  - HEADACHE [None]
  - GENERAL PHYSICAL HEALTH DETERIORATION [None]
  - ANHEDONIA [None]
  - EMOTIONAL DISTRESS [None]
  - PAIN [None]
